FAERS Safety Report 7981465-5 (Version None)
Quarter: 2011Q4

REPORT INFORMATION
  Report Type: 
  Country: None (occurrence: None)
  Receive Date: 20111215
  Receipt Date: 20111209
  Transmission Date: 20120403
  Serious: Yes (Other)
  Sender: FDA-Public Use
  Company Number: US-PFIZER INC-2011268602

PATIENT
  Sex: Female
  Weight: 70.295 kg

DRUGS (2)
  1. GEODON [Suspect]
     Indication: HALLUCINATION, AUDITORY
     Dosage: 40 MG, DAILY
     Route: 048
     Dates: end: 20110101
  2. GABAPENTIN [Suspect]
     Indication: NEURALGIA
     Dosage: 300 MG, 2X/DAY
     Route: 048
     Dates: start: 20111123

REACTIONS (3)
  - DYSKINESIA [None]
  - WEIGHT DECREASED [None]
  - DRUG INEFFECTIVE [None]
